FAERS Safety Report 4386965-5 (Version None)
Quarter: 2004Q2

REPORT INFORMATION
  Report Type: 
  Country: None (occurrence: None)
  Receive Date: 20040625
  Receipt Date: 20040615
  Transmission Date: 20050107
  Serious: Yes (Life-Threatening, Hospitalization)
  Sender: FDA-Public Use
  Company Number: 083-20785-04060295

PATIENT
  Sex: 0

DRUGS (1)
  1. THALIDOMIDE (THALIDOMIDE) (UNKNOWN) [Suspect]
     Indication: MYELOFIBROSIS
     Dosage: ESCALATING FROM 50 MG TO 400 MG AS TOLERATED., DAILY, ORAL
     Route: 048

REACTIONS (1)
  - NOCARDIOSIS [None]
